FAERS Safety Report 4444502-0 (Version None)
Quarter: 2004Q3

REPORT INFORMATION
  Report Type: 
  Country: None (occurrence: None)
  Receive Date: 20040902
  Receipt Date: 20040813
  Transmission Date: 20050211
  Serious: Yes (Other)
  Sender: FDA-Public Use
  Company Number: USA040669923

PATIENT
  Age: 67 Year
  Sex: Female

DRUGS (5)
  1. FORTEO [Suspect]
     Indication: OSTEOPOROSIS
     Dates: start: 20040525
  2. EVISTA [Suspect]
     Indication: OSTEOPOROSIS
     Dosage: 60 MG
     Dates: end: 20040501
  3. FOSAMAX [Concomitant]
  4. TIMOLOL MALEATE [Concomitant]
  5. SYNTHROID [Concomitant]

REACTIONS (14)
  - BLOOD PRESSURE FLUCTUATION [None]
  - BLOOD THYROID STIMULATING HORMONE DECREASED [None]
  - BONE SCAN ABNORMAL [None]
  - CEREBRAL ATROPHY [None]
  - HAEMATOCRIT DECREASED [None]
  - HAEMOGLOBIN DECREASED [None]
  - HYPERTENSION [None]
  - MYOCARDIAL INFARCTION [None]
  - PARAESTHESIA [None]
  - PCO2 INCREASED [None]
  - RED BLOOD CELL COUNT DECREASED [None]
  - RED CELL DISTRIBUTION WIDTH DECREASED [None]
  - SINUS BRADYCARDIA [None]
  - TREMOR [None]
